FAERS Safety Report 10843643 (Version 2)
Quarter: 2015Q1

REPORT INFORMATION
  Report Type: Spontaneous
  Country: US (occurrence: US)
  Receive Date: 20150220
  Receipt Date: 20150319
  Transmission Date: 20150721
  Serious: Yes (Death)
  Sender: FDA-Public Use
  Company Number: US-UCBSA-2015004473

PATIENT
  Age: 33 Year
  Sex: Male
  Weight: 94 kg

DRUGS (5)
  1. ESLICARBAZEPINE [Concomitant]
     Active Substance: ESLICARBAZEPINE
     Indication: SEIZURE
     Dosage: 800 MG, ONCE DAILY (QD)
     Route: 048
     Dates: start: 20141126, end: 20141209
  2. ONFI [Concomitant]
     Active Substance: CLOBAZAM
     Indication: SEIZURE
     Dosage: 20 MG, ONCE DAILY (QD)
     Dates: start: 20120712, end: 20141209
  3. FYCOMPA [Concomitant]
     Active Substance: PERAMPANEL
     Indication: SEIZURE
     Dosage: 8 MG, ONCE DAILY (QD)
     Route: 048
     Dates: start: 201402, end: 20141209
  4. CARBATROL [Concomitant]
     Active Substance: CARBAMAZEPINE
     Indication: SEIZURE
     Dosage: 300 MG, 2X/DAY (BID)
     Route: 048
     Dates: start: 20060906, end: 20141209
  5. VIMPAT [Suspect]
     Active Substance: LACOSAMIDE
     Indication: SEIZURE
     Dosage: 400 MG, ONCE DAILY (QD)
     Route: 048
     Dates: start: 20100514, end: 20141209

REACTIONS (2)
  - Seizure [Recovered/Resolved]
  - Drowning [Fatal]

NARRATIVE: CASE EVENT DATE: 20140814
